FAERS Safety Report 24982603 (Version 1)
Quarter: 2025Q1

REPORT INFORMATION
  Report Type: Report from Study
  Country: JP (occurrence: JP)
  Receive Date: 20250218
  Receipt Date: 20250218
  Transmission Date: 20250409
  Serious: Yes (Other)
  Sender: ALEXION PHARMACEUTICALS
  Company Number: JP-ASTRAZENECA-230073608_011820_P_1

PATIENT
  Age: 12 Year
  Weight: 37.3 kg

DRUGS (5)
  1. KOSELUGO [Suspect]
     Active Substance: SELUMETINIB
     Indication: Neurofibromatosis
     Dosage: 30 MILLIGRAM, BID
  2. KOSELUGO [Suspect]
     Active Substance: SELUMETINIB
     Dosage: 20 MILLIGRAM, BID
  3. KOSELUGO [Suspect]
     Active Substance: SELUMETINIB
     Dosage: 15 MILLIGRAM, BID
  4. KOSELUGO [Suspect]
     Active Substance: SELUMETINIB
     Dosage: 10 MILLIGRAM, BID
  5. KOSELUGO [Suspect]
     Active Substance: SELUMETINIB
     Dosage: 15 MILLIGRAM, BID

REACTIONS (5)
  - Melaena [Recovering/Resolving]
  - Malaise [Recovering/Resolving]
  - Abdominal discomfort [Not Recovered/Not Resolved]
  - Blood creatine phosphokinase increased [Recovered/Resolved]
  - Blood lactate dehydrogenase increased [Unknown]
